FAERS Safety Report 18425713 (Version 5)
Quarter: 2022Q4

REPORT INFORMATION
  Report Type: Report from Study
  Country: IT (occurrence: None)
  Receive Date: 20201026
  Receipt Date: 20221013
  Transmission Date: 20230113
  Serious: Yes (Hospitalization)
  Sender: FDA-Public Use
  Company Number: IT-ROCHE-2696549

PATIENT
  Age: 48 Year
  Sex: Female
  Weight: 58 kg

DRUGS (12)
  1. ATEZOLIZUMAB [Suspect]
     Active Substance: ATEZOLIZUMAB
     Indication: Breast cancer
     Dosage: NUMBER OF COURSES WERE 6, LAST DOSE BEFORE SAE WAS 02/OCT/2020?ATEZOLIZUMAB WILL BE GIVEN 1200 MG I.
     Route: 041
     Dates: start: 20200608
  2. TRASTUZUMAB [Suspect]
     Active Substance: TRASTUZUMAB
     Indication: Breast cancer
     Dosage: NO. OF COURSES 6, LAST DOSE BEFORE SAE WAS 348 MG ON 02/OCT/2020, TOTAL DOSE OF LAST ADMINISTARTION
     Route: 041
     Dates: start: 20200608
  3. PERTUZUMAB [Suspect]
     Active Substance: PERTUZUMAB
     Indication: Breast cancer
     Dosage: NO. OF CYCLES 6, LAST DOSE BEFORE SAE WAS 420 MG (TOTAL DOSE) ON 02/OCT/2020 LOADING DOSE ?PERTUZUMA
     Route: 042
     Dates: start: 20200608
  4. PERTUZUMAB [Suspect]
     Active Substance: PERTUZUMAB
     Dosage: MAINTENANCE  DOSE?LAST DOSE BEFORE SAE WAS 420 MG ON 02/OCT/2020
     Route: 042
     Dates: end: 20201009
  5. CARBOPLATIN [Suspect]
     Active Substance: CARBOPLATIN
     Indication: Breast cancer
     Dosage: TOTAL DOSE WAS 225 MG, LAST DOSE BEFORE SAE WAS ON 09/OCT/2020, NUMBER OF CYCLES 6?CARBOPLATIN WILL
     Route: 042
     Dates: start: 20200608
  6. PACLITAXEL [Suspect]
     Active Substance: PACLITAXEL
     Indication: Breast cancer
     Dosage: LAST DOSE 147 MG BEFORE SAE WAS 90 MG/MQ ON 09/OCT/2020, NUMBER OF COURSES 6?PACLITAXEL WILL BE GIVE
     Route: 042
     Dates: start: 20200608
  7. METHYLPREDNISOLONE [Concomitant]
     Active Substance: METHYLPREDNISOLONE
     Dates: start: 20201022
  8. VANCOMYCIN [Concomitant]
     Active Substance: VANCOMYCIN
     Route: 048
  9. METRONIDAZOLE [Concomitant]
     Active Substance: METRONIDAZOLE
     Dosage: 3 DAYS
     Route: 042
  10. LEVOFLOXACIN [Concomitant]
     Active Substance: LEVOFLOXACIN
     Indication: Vascular device infection
     Dates: start: 20200904, end: 20200914
  11. LEVOFLOXACIN [Concomitant]
     Active Substance: LEVOFLOXACIN
     Dates: start: 20200812, end: 20200818
  12. AMOXICILLIN\CLAVULANIC ACID [Concomitant]
     Active Substance: AMOXICILLIN\CLAVULANIC ACID
     Indication: Vascular device infection
     Dates: start: 20200804, end: 20200807

REACTIONS (1)
  - Enterocolitis [Recovered/Resolved]

NARRATIVE: CASE EVENT DATE: 20201013
